FAERS Safety Report 11346730 (Version 1)
Quarter: 2015Q3

REPORT INFORMATION
  Report Type: Spontaneous
  Country: US (occurrence: US)
  Receive Date: 20150803
  Receipt Date: 20150803
  Transmission Date: 20151125
  Serious: No
  Sender: FDA-Public Use
  Company Number: US-ELI_LILLY_AND_COMPANY-US201011007280

PATIENT
  Age: 32 Year
  Sex: Female

DRUGS (2)
  1. STRATTERA [Suspect]
     Active Substance: ATOMOXETINE HYDROCHLORIDE
     Dosage: 80 MG, UNK
  2. STRATTERA [Suspect]
     Active Substance: ATOMOXETINE HYDROCHLORIDE
     Indication: ATTENTION DEFICIT/HYPERACTIVITY DISORDER
     Dosage: 40 MG, UNK

REACTIONS (7)
  - Vulvovaginal dryness [Not Recovered/Not Resolved]
  - Ear pain [Unknown]
  - Anxiety [Unknown]
  - Constipation [Recovered/Resolved]
  - Haemorrhoids [Not Recovered/Not Resolved]
  - Libido decreased [Unknown]
  - Skin discolouration [Unknown]
